FAERS Safety Report 12966022 (Version 1)
Quarter: 2016Q4

REPORT INFORMATION
  Report Type: Spontaneous
  Country: TW (occurrence: TW)
  Receive Date: 20161122
  Receipt Date: 20161122
  Transmission Date: 20170207
  Serious: Yes (Hospitalization, Other)
  Sender: FDA-Public Use
  Company Number: TW-MYLANLABS-2016M1050267

PATIENT

DRUGS (19)
  1. CLOZAPINE. [Suspect]
     Active Substance: CLOZAPINE
     Dosage: 100 MG, QD
     Route: 048
     Dates: start: 19990325, end: 19990402
  2. FLUVOXAMINE [Interacting]
     Active Substance: FLUVOXAMINE
     Indication: SCHIZOPHRENIA
     Dosage: 50 MG, QD
     Route: 048
     Dates: start: 19981006, end: 19990102
  3. FLUVOXAMINE [Interacting]
     Active Substance: FLUVOXAMINE
     Dosage: 50 MG, AM
     Route: 048
     Dates: start: 19990129, end: 19990511
  4. CLOZAPINE. [Suspect]
     Active Substance: CLOZAPINE
     Dosage: 25 MG, QD
     Route: 048
     Dates: start: 19990310, end: 19990324
  5. CLOZAPINE. [Suspect]
     Active Substance: CLOZAPINE
     Dosage: 300 MG, QD
     Route: 048
     Dates: start: 19990514
  6. BISACODYL. [Concomitant]
     Active Substance: BISACODYL
     Dosage: 15 MG, 1 HS
     Route: 048
     Dates: start: 19990525, end: 19990525
  7. CLOZAPINE. [Suspect]
     Active Substance: CLOZAPINE
     Dosage: 100 MG, HS
     Route: 048
     Dates: start: 19990514, end: 19990526
  8. CLOZAPINE. [Suspect]
     Active Substance: CLOZAPINE
     Dosage: 100 MG, QD
     Route: 048
     Dates: start: 19990402, end: 19990511
  9. CLOZAPINE. [Suspect]
     Active Substance: CLOZAPINE
     Dosage: 100 MG, HS
     Route: 048
     Dates: start: 19990512, end: 19990513
  10. CLOZAPINE. [Suspect]
     Active Substance: CLOZAPINE
     Dosage: 200 MG, QD
     Route: 048
     Dates: start: 199905
  11. FLUVOXAMINE [Interacting]
     Active Substance: FLUVOXAMINE
     Dosage: 50 MG, QD
     Route: 048
     Dates: start: 19990518, end: 19990526
  12. BISACODYL. [Concomitant]
     Active Substance: BISACODYL
     Indication: PRODUCT USED FOR UNKNOWN INDICATION
     Dosage: 15 MG, HS
     Route: 048
     Dates: start: 19981005, end: 19990102
  13. DICLOFENAC [Concomitant]
     Active Substance: DICLOFENAC
     Indication: PRODUCT USED FOR UNKNOWN INDICATION
     Dosage: 25 MG, BID
     Route: 048
     Dates: start: 19990511, end: 19990516
  14. MGO [Concomitant]
     Indication: PRODUCT USED FOR UNKNOWN INDICATION
     Dosage: UNK UNK, BID
     Route: 048
     Dates: start: 19990511, end: 19990516
  15. CHLORZOXAZONE. [Concomitant]
     Active Substance: CHLORZOXAZONE
     Indication: PRODUCT USED FOR UNKNOWN INDICATION
     Dosage: 100 MG, BID
     Route: 048
     Dates: start: 19990511, end: 19990514
  16. CLOZAPINE. [Suspect]
     Active Substance: CLOZAPINE
     Dosage: 400 MG, QD
     Route: 048
     Dates: start: 199905
  17. LORAZEPAM. [Suspect]
     Active Substance: LORAZEPAM
     Indication: SCHIZOPHRENIA
     Dosage: 0.5 MG, BID
     Route: 048
     Dates: start: 19981005, end: 19981012
  18. CLOZAPINE. [Suspect]
     Active Substance: CLOZAPINE
     Indication: SCHIZOPHRENIA
     Dosage: 100 MG, HS
     Route: 048
     Dates: start: 19981005, end: 19990511
  19. CLOZAPINE. [Suspect]
     Active Substance: CLOZAPINE
     Dosage: 300 MG, QD
     Route: 048
     Dates: start: 199903

REACTIONS (5)
  - Seizure [Unknown]
  - Somnolence [Unknown]
  - Affect lability [Unknown]
  - Drug interaction [Unknown]
  - Consciousness fluctuating [Unknown]

NARRATIVE: CASE EVENT DATE: 19981013
